FAERS Safety Report 11907269 (Version 1)
Quarter: 2016Q1

REPORT INFORMATION
  Report Type: Spontaneous
  Country: US (occurrence: US)
  Receive Date: 20160111
  Receipt Date: 20160111
  Transmission Date: 20160526
  Serious: Yes (Death)
  Sender: FDA-Public Use
  Company Number: US-MEDA-2016010055

PATIENT
  Age: 60 Year
  Sex: Female

DRUGS (4)
  1. CARISOPRODOL. [Suspect]
     Active Substance: CARISOPRODOL
  2. OXYCODONE [Suspect]
     Active Substance: OXYCODONE
  3. DIAZEPAM. [Suspect]
     Active Substance: DIAZEPAM
  4. HYDROCODONE [Suspect]
     Active Substance: HYDROCODONE

REACTIONS (1)
  - Death [Fatal]

NARRATIVE: CASE EVENT DATE: 2014
